FAERS Safety Report 4999451-6 (Version None)
Quarter: 2006Q2

REPORT INFORMATION
  Report Type: 
  Country: None (occurrence: None)
  Receive Date: 20060509
  Receipt Date: 20060509
  Transmission Date: 20061013
  Serious: No
  Sender: FDA-Public Use
  Company Number: None

PATIENT
  Age: 76 Year
  Sex: Female
  Weight: 72 kg

DRUGS (20)
  1. UNASYN [Suspect]
     Indication: PNEUMONIA
     Dosage: 1.5 G IV Q 6 HOURS
     Route: 042
     Dates: start: 20050922, end: 20050927
  2. APAP TAB [Concomitant]
  3. LABETALOL [Concomitant]
  4. LANSOPRAZOLE [Concomitant]
  5. SENNA [Concomitant]
  6. SIMVASTATIN [Concomitant]
  7. AMIODARONE [Concomitant]
  8. LOSARTIN [Concomitant]
  9. ASPIRIN [Concomitant]
  10. CLOPIDOGREL [Concomitant]
  11. POTASSIUM CHLORIDE [Concomitant]
  12. MORPHINE [Concomitant]
  13. HEPARIN [Concomitant]
  14. DOCUSATE [Concomitant]
  15. NYSTATIN [Concomitant]
  16. SPIRONOLACTONE [Concomitant]
  17. METOPROLOL TARTRATE [Concomitant]
  18. BACTRIM [Concomitant]
  19. FUROSEMIDE [Concomitant]
  20. AMLODIPINE [Concomitant]

REACTIONS (2)
  - ERYTHEMA [None]
  - RASH MACULO-PAPULAR [None]
